FAERS Safety Report 5884646-X (Version None)
Quarter: 2008Q3

REPORT INFORMATION
  Report Type: 
  Country: None (occurrence: None)
  Receive Date: 20080911
  Receipt Date: 20080827
  Transmission Date: 20090109
  Serious: Yes (Life-Threatening, Hospitalization)
  Sender: FDA-Public Use
  Company Number: 1000000749

PATIENT
  Age: 39 Year
  Sex: Female

DRUGS (6)
  1. ACAMPROSATE (ACAMPROSATE CALCIUM) (333 MILLIGRAM, TABLETS) [Suspect]
     Dosage: 999 MG (333 MG, 3 IN 1 D), ORAL
     Route: 048
     Dates: start: 20080620, end: 20080728
  2. DEPAKOTE [Suspect]
     Dosage: 500 MG (250 MG, 2 IN 1 D), ORAL
     Route: 048
     Dates: start: 20080624, end: 20080720
  3. SEROPRAM (20 MILLIGRAM, TABLETS) [Suspect]
     Dosage: 40 MG (20 MG, 2 IN 1 D), ORAL
     Route: 048
     Dates: start: 20080620, end: 20080728
  4. SEGLOR (5 MILLIGRAM, CAPSULES) [Suspect]
     Dosage: 10 MG (5 MG, 2 IN 1 D), ORAL
     Route: 048
     Dates: start: 20080625, end: 20080720
  5. VALIUM [Suspect]
     Dosage: 30 MG (30 MG, 1 IN 1 D), ORAL
     Route: 048
     Dates: start: 20080620, end: 20080728
  6. STILNOX (10 MILLIGRAM, TABLETS) [Suspect]
     Dosage: 10 MG (10 MG, 1 IN 1 D), ORAL
     Route: 048
     Dates: start: 20080623, end: 20080728

REACTIONS (4)
  - ANTICONVULSANT DRUG LEVEL BELOW THERAPEUTIC [None]
  - CHOLANGIOLITIS [None]
  - HEPATITIS FULMINANT [None]
  - LIVER TRANSPLANT [None]
